FAERS Safety Report 6932778-7 (Version None)
Quarter: 2010Q3

REPORT INFORMATION
  Report Type: 
  Country: None (occurrence: None)
  Receive Date: 20100819
  Receipt Date: 20100810
  Transmission Date: 20110219
  Serious: Yes (Other)
  Sender: FDA-Public Use
  Company Number: US-ABBOTT-10P-163-0663209-00

PATIENT
  Sex: Male

DRUGS (1)
  1. HUMIRA [Suspect]
     Indication: JUVENILE ARTHRITIS
     Dates: start: 20100809, end: 20100809

REACTIONS (10)
  - COLD SWEAT [None]
  - DIZZINESS [None]
  - EYE ROLLING [None]
  - HYPOTENSION [None]
  - LIP DISCOLOURATION [None]
  - MYDRIASIS [None]
  - PALLOR [None]
  - PRESYNCOPE [None]
  - PULSE ABNORMAL [None]
  - THIRST [None]
